FAERS Safety Report 5923854-6 (Version None)
Quarter: 2008Q4

REPORT INFORMATION
  Report Type: 
  Country: None (occurrence: None)
  Receive Date: 20081020
  Receipt Date: 20081009
  Transmission Date: 20090506
  Serious: Yes (Life-Threatening)
  Sender: FDA-Public Use
  Company Number: FR-ROCHE-583918

PATIENT
  Sex: Female

DRUGS (10)
  1. RIVOTRIL [Suspect]
     Indication: ANXIETY
     Route: 048
  2. RISPERDAL [Suspect]
     Indication: ANXIETY
     Route: 048
  3. NEXIUM [Suspect]
     Indication: DRUG USE FOR UNKNOWN INDICATION
     Route: 048
  4. NORSET [Suspect]
     Indication: DEPRESSION
     Dosage: DOSAGE REGIMEN: 30 MG/SEC
     Route: 048
  5. MINIRIN NASAL [Suspect]
     Indication: URINARY INCONTINENCE
     Dosage: DRUG NAME: MINIRIN SPRAY, ROUTE: NASAL
     Route: 050
     Dates: start: 20080516, end: 20080525
  6. CERIS [Concomitant]
     Indication: URINARY INCONTINENCE
     Route: 048
     Dates: start: 20080516, end: 20080525
  7. KARDEGIC [Concomitant]
  8. TRANSIPEG [Concomitant]
  9. ACETAMINOPHEN W/ CODEINE [Concomitant]
  10. SODIUM CHLORIDE [Concomitant]

REACTIONS (3)
  - FALL [None]
  - HYPONATRAEMIA [None]
  - OFF LABEL USE [None]
